FAERS Safety Report 22005397 (Version 1)
Quarter: 2023Q1

REPORT INFORMATION
  Report Type: Spontaneous
  Country: US (occurrence: None)
  Receive Date: 20230216
  Receipt Date: 20230216
  Transmission Date: 20230417
  Serious: Yes (Life-Threatening, Hospitalization)
  Sender: FDA-Public Use
  Company Number: None

PATIENT
  Age: 76 Year
  Sex: Female
  Weight: 83.7 kg

DRUGS (1)
  1. EVENITY [Suspect]
     Active Substance: ROMOSOZUMAB-AQQG
     Indication: Osteoporosis
     Dosage: OTHER FREQUENCY : MONTHLY;?
     Route: 058
     Dates: start: 20220103, end: 20221227

REACTIONS (2)
  - Cerebellar stroke [None]
  - Therapy interrupted [None]

NARRATIVE: CASE EVENT DATE: 20221227
